FAERS Safety Report 14483059 (Version 1)
Quarter: 2018Q1

REPORT INFORMATION
  Report Type: Spontaneous
  Country: US (occurrence: US)
  Receive Date: 20180202
  Receipt Date: 20180202
  Transmission Date: 20180509
  Serious: Yes (Disabling)
  Sender: FDA-Public Use
  Company Number: None

PATIENT
  Age: 53 Year
  Sex: Male
  Weight: 61.23 kg

DRUGS (6)
  1. TRUVADA [Concomitant]
     Active Substance: EMTRICITABINE\TENOFOVIR DISOPROXIL FUMARATE
  2. GADOVIST [Suspect]
     Active Substance: GADOBUTROL
     Indication: NUCLEAR MAGNETIC RESONANCE IMAGING
     Route: 042
     Dates: start: 20171216
  3. GADOVIST [Suspect]
     Active Substance: GADOBUTROL
     Indication: SCAN WITH CONTRAST
     Route: 042
     Dates: start: 20171216
  4. PREZISTA [Concomitant]
     Active Substance: DARUNAVIR ETHANOLATE
  5. LOSARTAN. [Concomitant]
     Active Substance: LOSARTAN
  6. NORVIR [Concomitant]
     Active Substance: RITONAVIR

REACTIONS (22)
  - Paraesthesia [None]
  - Muscle tightness [None]
  - Heart rate increased [None]
  - Abdominal pain [None]
  - Myalgia [None]
  - Blepharospasm [None]
  - HIV infection [None]
  - Toxicity to various agents [None]
  - Fatigue [None]
  - Hypoaesthesia [None]
  - Headache [None]
  - Bone pain [None]
  - Neuropathy peripheral [None]
  - Palpitations [None]
  - Concomitant disease aggravated [None]
  - Malaise [None]
  - Cognitive disorder [None]
  - Discomfort [None]
  - Tinnitus [None]
  - Arthralgia [None]
  - Dysgeusia [None]
  - Drug screen positive [None]

NARRATIVE: CASE EVENT DATE: 20171216
